FAERS Safety Report 17260524 (Version 3)
Quarter: 2020Q1

REPORT INFORMATION
  Report Type: Report from Study
  Country: US (occurrence: US)
  Receive Date: 20200113
  Receipt Date: 20200325
  Transmission Date: 20200409
  Serious: No
  Sender: FDA-Public Use
  Company Number: US-INCYTE CORPORATION-2019IN012380

PATIENT

DRUGS (7)
  1. JAKAFI [Suspect]
     Active Substance: RUXOLITINIB
     Indication: MYELOFIBROSIS
     Dosage: 10 MILLIGRAM, BID
     Route: 048
     Dates: start: 20190101
  2. JAKAFI [Suspect]
     Active Substance: RUXOLITINIB
     Dosage: 10 MILLIGRAM, BID
     Route: 048
  3. JAKAFI [Suspect]
     Active Substance: RUXOLITINIB
     Dosage: 20 MILLIGRAM, BID
     Route: 048
  4. JAKAFI [Suspect]
     Active Substance: RUXOLITINIB
     Dosage: 20 MILLIGRAM, BID
     Route: 048
     Dates: start: 20200127
  5. JAKAFI [Suspect]
     Active Substance: RUXOLITINIB
     Dosage: SPLITTING 20 MG TABS FROM A PREVIOUS DOSE
     Route: 065
  6. XANAX [Concomitant]
     Active Substance: ALPRAZOLAM
     Indication: PRODUCT USED FOR UNKNOWN INDICATION
     Dosage: 0.25 MILLIGRAM PRN
     Route: 065
  7. JAKAFI [Suspect]
     Active Substance: RUXOLITINIB
     Dosage: 20 MILLIGRAM
     Route: 065

REACTIONS (17)
  - Disturbance in attention [Unknown]
  - Weight increased [Not Recovered/Not Resolved]
  - Splenomegaly [Not Recovered/Not Resolved]
  - Stress [Not Recovered/Not Resolved]
  - Influenza like illness [Not Recovered/Not Resolved]
  - Arthralgia [Unknown]
  - Wrong technique in product usage process [Unknown]
  - Increased appetite [Not Recovered/Not Resolved]
  - Pain [Unknown]
  - Haemoglobin decreased [Recovering/Resolving]
  - Abdominal pain [Unknown]
  - Decreased appetite [Unknown]
  - Intentional product use issue [Unknown]
  - Product dose omission [Unknown]
  - Dyspnoea [Unknown]
  - Myalgia [Not Recovered/Not Resolved]
  - Nasopharyngitis [Not Recovered/Not Resolved]
